FAERS Safety Report 12167208 (Version 1)
Quarter: 2016Q1

REPORT INFORMATION
  Report Type: Spontaneous
  Country: US (occurrence: None)
  Receive Date: 20160309
  Receipt Date: 20160309
  Transmission Date: 20160526
  Serious: No
  Sender: FDA-Public Use
  Company Number: None

PATIENT
  Age: 56 Year
  Sex: Female

DRUGS (4)
  1. PRILOSEC [Suspect]
     Active Substance: OMEPRAZOLE MAGNESIUM
  2. NEXIUM [Suspect]
     Active Substance: ESOMEPRAZOLE MAGNESIUM
  3. OMEPRAZOLE. [Suspect]
     Active Substance: OMEPRAZOLE
  4. HYOSCYAMINE. [Suspect]
     Active Substance: HYOSCYAMINE

REACTIONS (7)
  - Weight decreased [None]
  - Gastrooesophageal reflux disease [None]
  - Drug ineffective [None]
  - Blister [None]
  - Haemorrhage [None]
  - Vomiting [None]
  - Oesophageal rupture [None]
